FAERS Safety Report 7683126-9 (Version None)
Quarter: 2011Q3

REPORT INFORMATION
  Report Type: 
  Country: None (occurrence: None)
  Receive Date: 20110815
  Receipt Date: 20110812
  Transmission Date: 20111222
  Serious: Yes (Other)
  Sender: FDA-Public Use
  Company Number: US-PFIZER INC-2011186288

PATIENT
  Age: 49 Year
  Sex: Female
  Weight: 77.098 kg

DRUGS (1)
  1. ADVIL LIQUI-GELS [Suspect]
     Indication: SWELLING
     Dosage: 400 MG, 1X/DAY
     Route: 048
     Dates: end: 20110801

REACTIONS (2)
  - RASH GENERALISED [None]
  - ANAPHYLACTIC SHOCK [None]
